FAERS Safety Report 16873046 (Version 3)
Quarter: 2019Q4

REPORT INFORMATION
  Report Type: Spontaneous
  Country: TW (occurrence: TW)
  Receive Date: 20191001
  Receipt Date: 20191030
  Transmission Date: 20200122
  Serious: No
  Sender: FDA-Public Use
  Company Number: TW-BEH-2019107412

PATIENT
  Age: 10 Year
  Sex: Male
  Weight: 29.9 kg

DRUGS (2)
  1. PRIVIGEN [Suspect]
     Active Substance: HUMAN IMMUNOGLOBULIN G
     Dosage: UNK
     Route: 042
     Dates: start: 20190904, end: 20190909
  2. PRIVIGEN [Suspect]
     Active Substance: HUMAN IMMUNOGLOBULIN G
     Dosage: UNK
     Route: 042
     Dates: start: 20190924

REACTIONS (3)
  - Headache [Recovered/Resolved]
  - Rash erythematous [Recovered/Resolved]
  - Vomiting [Recovered/Resolved]
